FAERS Safety Report 19691969 (Version 1)
Quarter: 2021Q3

REPORT INFORMATION
  Report Type: Spontaneous
  Country: GR (occurrence: GR)
  Receive Date: 20210812
  Receipt Date: 20210812
  Transmission Date: 20211014
  Serious: Yes (Hospitalization)
  Sender: FDA-Public Use
  Company Number: GR-TEVA-2021-GR-1940055

PATIENT
  Age: 35 Year
  Sex: Male

DRUGS (10)
  1. VINCRISTINE [Suspect]
     Active Substance: VINCRISTINE
     Dosage: PART OF R?HYPER?CVAD
     Route: 065
     Dates: start: 202005
  2. DOXORUBICIN [Suspect]
     Active Substance: DOXORUBICIN
     Indication: ACUTE LYMPHOCYTIC LEUKAEMIA
     Dosage: PART OF R?HYPER?CVAD
     Route: 065
     Dates: start: 202003
  3. RITUXIMAB. [Suspect]
     Active Substance: RITUXIMAB
     Indication: ACUTE LYMPHOCYTIC LEUKAEMIA
     Dosage: PART OF R?HYPER?CVAD
     Route: 065
     Dates: start: 202003
  4. DEXAMETHASONE. [Suspect]
     Active Substance: DEXAMETHASONE
     Indication: ACUTE LYMPHOCYTIC LEUKAEMIA
     Dosage: PART OF R?HYPER?CVAD
     Route: 065
     Dates: start: 202003
  5. RITUXIMAB. [Suspect]
     Active Substance: RITUXIMAB
     Dosage: PART OF R?HYPER?CVAD
     Route: 065
     Dates: start: 202005
  6. CYCLOPHOSPHAMIDE. [Suspect]
     Active Substance: CYCLOPHOSPHAMIDE
     Indication: ACUTE LYMPHOCYTIC LEUKAEMIA
     Dosage: PART OF R?HYPER?CVAD
     Route: 065
     Dates: start: 202003
  7. DEXAMETHASONE. [Suspect]
     Active Substance: DEXAMETHASONE
     Dosage: PART OF R?HYPER?CVAD
     Route: 065
     Dates: start: 202005
  8. DOXORUBICIN [Suspect]
     Active Substance: DOXORUBICIN
     Dosage: PART OF R?HYPER?CVAD
     Route: 065
     Dates: start: 202005
  9. VINCRISTINE [Suspect]
     Active Substance: VINCRISTINE
     Indication: ACUTE LYMPHOCYTIC LEUKAEMIA
     Dosage: PART OF R?HYPER?CVAD
     Route: 065
     Dates: start: 202003
  10. CYCLOPHOSPHAMIDE. [Suspect]
     Active Substance: CYCLOPHOSPHAMIDE
     Dosage: PART OF R?HYPER?CVAD
     Route: 065
     Dates: start: 202005

REACTIONS (1)
  - COVID-19 pneumonia [Recovered/Resolved]

NARRATIVE: CASE EVENT DATE: 20200326
